FAERS Safety Report 25176726 (Version 1)
Quarter: 2025Q2

REPORT INFORMATION
  Report Type: Spontaneous
  Country: PL (occurrence: PL)
  Receive Date: 20250409
  Receipt Date: 20250409
  Transmission Date: 20250717
  Serious: Yes (Hospitalization)
  Sender: ACCORD
  Company Number: None

PATIENT
  Age: 66 Year
  Sex: Male
  Weight: 92 kg

DRUGS (2)
  1. CISPLATIN [Suspect]
     Active Substance: CISPLATIN
     Indication: Bladder cancer
     Dates: start: 20210119, end: 20210119
  2. GEMCITABINE [Suspect]
     Active Substance: GEMCITABINE
     Indication: Bladder cancer
     Dates: start: 20210119, end: 20210119

REACTIONS (3)
  - Anaemia [Recovering/Resolving]
  - Thrombocytopenia [Recovering/Resolving]
  - Neutropenia [Recovering/Resolving]

NARRATIVE: CASE EVENT DATE: 20210125
